FAERS Safety Report 7179189-X (Version None)
Quarter: 2010Q4

REPORT INFORMATION
  Report Type: 
  Country: None (occurrence: None)
  Receive Date: 20101221
  Receipt Date: 20101202
  Transmission Date: 20110411
  Serious: No
  Sender: FDA-Public Use
  Company Number: US-B.I. PHARMACEUTICALS,INC./RIDGEFIELD-2010-BP-13633BP

PATIENT
  Age: 85 Year
  Sex: Female

DRUGS (12)
  1. PRADAXA [Suspect]
     Indication: ATRIAL FIBRILLATION
     Dosage: 300 MG
     Route: 048
     Dates: start: 20101115
  2. CRESTOR [Concomitant]
     Indication: BLOOD CHOLESTEROL INCREASED
  3. GABAPENTIN [Concomitant]
     Indication: NEUROPATHY PERIPHERAL
     Dosage: 300 MG
  4. HYDROCODONE [Concomitant]
     Indication: ARTHRITIS
  5. LEVOXYL [Concomitant]
     Indication: THYROID DISORDER
     Dosage: 75 MG
  6. BISOPAR HCT [Concomitant]
     Indication: CARDIAC DISORDER
  7. DIGOXIN [Concomitant]
     Indication: ATRIAL FIBRILLATION
  8. METHYLON [Concomitant]
     Indication: DIABETES MELLITUS
  9. GLYBURIDE [Concomitant]
     Indication: DIABETES MELLITUS
  10. MULTIVIT [Concomitant]
     Indication: PROPHYLAXIS
  11. IRON [Concomitant]
     Indication: PROPHYLAXIS
  12. SULFAMETH [Concomitant]
     Indication: CYSTITIS

REACTIONS (2)
  - ABDOMINAL PAIN UPPER [None]
  - ASTHENIA [None]
